FAERS Safety Report 6481149-9 (Version None)
Quarter: 2009Q4

REPORT INFORMATION
  Report Type: 
  Country: None (occurrence: None)
  Receive Date: 20091208
  Receipt Date: 20091201
  Transmission Date: 20100525
  Serious: No
  Sender: FDA-Public Use
  Company Number: US-B.I. PHARMACEUTICALS,INC./RIDGEFIELD-2009-BP-13994BP

PATIENT

DRUGS (2)
  1. VIRAMUNE [Suspect]
     Route: 048
  2. TRUVADA [Suspect]

REACTIONS (1)
  - T-LYMPHOCYTE COUNT DECREASED [None]
